FAERS Safety Report 6699308-9 (Version None)
Quarter: 2010Q2

REPORT INFORMATION
  Report Type: 
  Country: None (occurrence: None)
  Receive Date: 20100427
  Receipt Date: 20100415
  Transmission Date: 20101027
  Serious: No
  Sender: FDA-Public Use
  Company Number: US-ELI_LILLY_AND_COMPANY-US201003006045

PATIENT
  Sex: Female

DRUGS (6)
  1. CYMBALTA [Suspect]
     Indication: DEPRESSION
     Dosage: 60 MG, UNK
     Dates: start: 20090201, end: 20100301
  2. INTERFERON BETA-1A [Concomitant]
     Indication: MULTIPLE SCLEROSIS
     Dosage: 1 D/F, UNK
  3. INTERFERON BETA-1A [Concomitant]
     Dosage: 22 UG, UNK
  4. NEURONTIN [Concomitant]
     Indication: PAIN
  5. COZAAR [Concomitant]
     Indication: HYPERTENSION
  6. WELLBUTRIN [Concomitant]
     Indication: DEPRESSION

REACTIONS (3)
  - ALANINE AMINOTRANSFERASE INCREASED [None]
  - ASPARTATE AMINOTRANSFERASE INCREASED [None]
  - DEPRESSION [None]
